FAERS Safety Report 7085200-7 (Version None)
Quarter: 2010Q4

REPORT INFORMATION
  Report Type: 
  Country: None (occurrence: None)
  Receive Date: 20101105
  Receipt Date: 20101101
  Transmission Date: 20110411
  Serious: Yes (Other)
  Sender: FDA-Public Use
  Company Number: US-WYE-H18497110

PATIENT
  Sex: Female

DRUGS (2)
  1. PRISTIQ [Suspect]
     Dosage: UNKNOWN
     Route: 065
     Dates: start: 20100101, end: 20100101
  2. PRISTIQ [Suspect]
     Dosage: 100 MG (FREQUENCY UNKNOWN)
     Route: 048
     Dates: start: 20101001

REACTIONS (6)
  - DISORIENTATION [None]
  - DIZZINESS [None]
  - DRUG WITHDRAWAL SYNDROME [None]
  - MEDICATION ERROR [None]
  - PARAESTHESIA [None]
  - SINUS OPERATION [None]
